FAERS Safety Report 25551951 (Version 1)
Quarter: 2025Q3

REPORT INFORMATION
  Report Type: Spontaneous
  Country: US (occurrence: US)
  Receive Date: 20250714
  Receipt Date: 20250714
  Transmission Date: 20251021
  Serious: Yes (Other)
  Sender: BRISTOL-MYERS SQUIBB COMPANY
  Company Number: US-BRISTOL-MYERS SQUIBB COMPANY-2025-098290

PATIENT
  Age: 84 Year
  Sex: Female

DRUGS (1)
  1. KRAZATI [Suspect]
     Active Substance: ADAGRASIB
     Indication: Product used for unknown indication
     Route: 048

REACTIONS (1)
  - Drug ineffective [Unknown]
